FAERS Safety Report 5738685-X (Version None)
Quarter: 2008Q2

REPORT INFORMATION
  Report Type: 
  Country: None (occurrence: None)
  Receive Date: 20080515
  Receipt Date: 20080414
  Transmission Date: 20081010
  Serious: No
  Sender: FDA-Public Use
  Company Number: US-BAYER-200810788NA

PATIENT
  Sex: Male

DRUGS (3)
  1. CIPRO [Suspect]
     Indication: DRUG USE FOR UNKNOWN INDICATION
     Route: 048
     Dates: start: 20040101
  2. SULFAMETHOXAZOLE AND TRIMETHOPRIM [Suspect]
     Indication: PROSTATE INFECTION
  3. DOXYCYCLINE [Suspect]

REACTIONS (13)
  - ASTHENIA [None]
  - EYE HAEMORRHAGE [None]
  - EYE IRRITATION [None]
  - FATIGUE [None]
  - FEELING ABNORMAL [None]
  - GENITAL PAIN [None]
  - MOBILITY DECREASED [None]
  - NASAL DISCOMFORT [None]
  - NERVOUSNESS [None]
  - ORAL DISCOMFORT [None]
  - PAIN [None]
  - TINNITUS [None]
  - URINARY TRACT PAIN [None]
